FAERS Safety Report 6918185-1 (Version None)
Quarter: 2010Q3

REPORT INFORMATION
  Report Type: 
  Country: None (occurrence: None)
  Receive Date: 20100806
  Receipt Date: 20100723
  Transmission Date: 20110219
  Serious: Yes (Other)
  Sender: FDA-Public Use
  Company Number: 2010-2630

PATIENT
  Age: 46 Year
  Sex: Female
  Weight: 54 kg

DRUGS (2)
  1. DYSPORT [Suspect]
     Indication: PRODUCT USED FOR UNKNOWN INDICATION
     Dosage: (,SINGLE CYCLE), INTRAMUSCULAR
     Route: 030
     Dates: start: 20100710, end: 20100710
  2. DYSPORT [Suspect]
     Indication: SKIN WRINKLING
     Dosage: (,SINGLE CYCLE), INTRAMUSCULAR
     Route: 030
     Dates: start: 20100710, end: 20100710

REACTIONS (5)
  - DIZZINESS [None]
  - HEADACHE [None]
  - INJECTION SITE PAIN [None]
  - KERATITIS BACTERIAL [None]
  - ULCERATIVE KERATITIS [None]
